FAERS Safety Report 8367512-X (Version None)
Quarter: 2012Q2

REPORT INFORMATION
  Report Type: 
  Country: None (occurrence: None)
  Receive Date: 20120517
  Receipt Date: 20120406
  Transmission Date: 20120825
  Serious: No
  Sender: FDA-Public Use
  Company Number: US-GLAXOSMITHKLINE-A0973648A

PATIENT
  Age: 75 Year
  Sex: Male

DRUGS (3)
  1. LEXAPRO [Suspect]
     Indication: PRODUCT USED FOR UNKNOWN INDICATION
     Dates: start: 20120406
  2. CALCIUM CARBONATE [Concomitant]
  3. VOTRIENT [Suspect]
     Indication: RENAL CANCER
     Dosage: 800MGD PER DAY
     Route: 048

REACTIONS (2)
  - VOMITING [None]
  - MALAISE [None]
